FAERS Safety Report 13451383 (Version 2)
Quarter: 2017Q2

REPORT INFORMATION
  Report Type: Spontaneous
  Country: US (occurrence: US)
  Receive Date: 20170418
  Receipt Date: 20170529
  Transmission Date: 20170830
  Serious: Yes (Hospitalization)
  Sender: FDA-Public Use
  Company Number: US-AUROBINDO-AUR-APL-2017-32731

PATIENT
  Age: 19 Year
  Sex: Female

DRUGS (1)
  1. LAMOTRIGINE. [Suspect]
     Active Substance: LAMOTRIGINE
     Indication: BIPOLAR DISORDER
     Route: 065

REACTIONS (10)
  - Arthralgia [Recovered/Resolved]
  - Rash [Recovered/Resolved]
  - Acute kidney injury [Unknown]
  - Leukocytosis [Recovered/Resolved]
  - Tubulointerstitial nephritis [Unknown]
  - Transaminases increased [Recovered/Resolved]
  - Retinal pigment epitheliopathy [Recovered/Resolved]
  - Uveitis [Recovered/Resolved]
  - Visual acuity reduced [Recovered/Resolved]
  - Eosinophilia [Recovered/Resolved]
